FAERS Safety Report 15508010 (Version 1)
Quarter: 2018Q4

REPORT INFORMATION
  Report Type: Spontaneous
  Country: US (occurrence: US)
  Receive Date: 20181016
  Receipt Date: 20181016
  Transmission Date: 20190205
  Serious: Yes (Hospitalization)
  Sender: FDA-Public Use
  Company Number: US-LEXICON PHARMACEUTICALS, INC-18-1606-01271

PATIENT
  Age: 48 Year
  Sex: Male

DRUGS (11)
  1. TELOTRISTAT ETHYL [Suspect]
     Active Substance: TELOTRISTAT ETHYL
     Indication: NEUROENDOCRINE TUMOUR
     Route: 048
     Dates: start: 201808
  2. FLUTICASONE PROP [Concomitant]
     Active Substance: FLUTICASONE PROPIONATE
  3. COLCHICINE. [Concomitant]
     Active Substance: COLCHICINE
  4. NOVOLOG [Concomitant]
     Active Substance: INSULIN ASPART
  5. LANREOTIDE [Suspect]
     Active Substance: LANREOTIDE
  6. ASPIRIN. [Concomitant]
     Active Substance: ASPIRIN
  7. OMEPRAZOLE. [Concomitant]
     Active Substance: OMEPRAZOLE
  8. LEVEMIR [Concomitant]
     Active Substance: INSULIN DETEMIR
  9. AFINITOR [Suspect]
     Active Substance: EVEROLIMUS
  10. FLORASTOR [Concomitant]
     Active Substance: SACCHAROMYCES CEREVISIAE
  11. HYDROCODONE-APAP [Concomitant]
     Active Substance: ACETAMINOPHEN\HYDROCODONE

REACTIONS (1)
  - Blood glucose increased [Recovering/Resolving]

NARRATIVE: CASE EVENT DATE: 201809
